FAERS Safety Report 23688796 (Version 2)
Quarter: 2024Q2

REPORT INFORMATION
  Report Type: Report from Study
  Country: CN (occurrence: CN)
  Receive Date: 20240329
  Receipt Date: 20240404
  Transmission Date: 20240715
  Serious: Yes (Other)
  Sender: FDA-Public Use
  Company Number: CN-GILEAD-2024-0667005

PATIENT

DRUGS (2)
  1. SOFOSBUVIR [Suspect]
     Active Substance: SOFOSBUVIR
     Indication: Acute hepatitis C
     Dosage: 200 MG, QD
     Route: 048
  2. DACLATASVIR [Concomitant]
     Active Substance: DACLATASVIR
     Indication: Acute hepatitis C
     Dosage: FULL-DOSE (90 MG ORALLY,  QD,)
     Route: 048

REACTIONS (1)
  - Bradycardia [Unknown]
